FAERS Safety Report 4793392-5 (Version None)
Quarter: 2005Q4

REPORT INFORMATION
  Report Type: 
  Country: None (occurrence: None)
  Receive Date: 20051005
  Receipt Date: 20050922
  Transmission Date: 20060501
  Serious: Yes (Other)
  Sender: FDA-Public Use
  Company Number: 2005133138

PATIENT
  Sex: Female
  Weight: 86.1834 kg

DRUGS (4)
  1. DETROL LA [Suspect]
     Indication: BLADDER DISORDER
     Dosage: 4 MG (4 MG, 1 IN 1 D) ORAL
     Route: 048
     Dates: start: 20040101
  2. DETROL [Suspect]
     Indication: BLADDER DISORDER
     Dosage: 2 MG (2 MG, 1 IN 1 D) ORAL
     Route: 048
     Dates: start: 20031101
  3. ACIPHEX [Concomitant]
  4. SYNTHROID [Concomitant]

REACTIONS (11)
  - ABDOMINAL DISTENSION [None]
  - ABDOMINAL PAIN [None]
  - ANAEMIA [None]
  - CONDITION AGGRAVATED [None]
  - DIARRHOEA [None]
  - DRY MOUTH [None]
  - ERUCTATION [None]
  - FEELING ABNORMAL [None]
  - FLATULENCE [None]
  - GASTROOESOPHAGEAL REFLUX DISEASE [None]
  - URINARY INCONTINENCE [None]
